FAERS Safety Report 9824176 (Version 1)
Quarter: 2014Q1

REPORT INFORMATION
  Report Type: Spontaneous
  Country: BR (occurrence: BR)
  Receive Date: 20140116
  Receipt Date: 20140116
  Transmission Date: 20141002
  Serious: Yes (Other)
  Sender: FDA-Public Use
  Company Number: BR-GLAXOSMITHKLINE-A1056991A

PATIENT
  Sex: Male

DRUGS (1)
  1. FLIXOTIDE [Suspect]
     Indication: ASTHMA
     Dosage: 50MCG UNKNOWN
     Route: 055

REACTIONS (2)
  - Asthmatic crisis [Recovered/Resolved]
  - Drug ineffective [Recovered/Resolved]
